FAERS Safety Report 20993541 (Version 2)
Quarter: 2022Q2

REPORT INFORMATION
  Report Type: Spontaneous
  Country: US (occurrence: US)
  Receive Date: 20220622
  Receipt Date: 20220624
  Transmission Date: 20220721
  Serious: No
  Sender: FDA-Public Use
  Company Number: US-PFIZER INC-202200856635

PATIENT
  Age: 49 Year
  Sex: Female
  Weight: 57.15 kg

DRUGS (1)
  1. DESVENLAFAXINE SUCCINATE [Suspect]
     Active Substance: DESVENLAFAXINE SUCCINATE
     Dosage: UNK

REACTIONS (4)
  - Drug ineffective [Unknown]
  - Anxiety [Unknown]
  - Panic disorder [Unknown]
  - Depression [Unknown]
